FAERS Safety Report 9831020 (Version 3)
Quarter: 2014Q1

REPORT INFORMATION
  Report Type: Spontaneous
  Country: IT (occurrence: IT)
  Receive Date: 20140120
  Receipt Date: 20140124
  Transmission Date: 20141002
  Serious: Yes (Hospitalization)
  Sender: FDA-Public Use
  Company Number: IT-009507513-1401ITA006587

PATIENT
  Age: 43 Year
  Sex: Male

DRUGS (6)
  1. PEGINTRON [Suspect]
     Indication: CHRONIC HEPATITIS
     Dosage: 120 MICROGRAM, QW
     Route: 058
     Dates: start: 20131209, end: 20140110
  2. REBETOL [Suspect]
     Indication: CHRONIC HEPATITIS
     Dosage: 1200MG DAILY
     Route: 048
     Dates: start: 20131209
  3. TELAPREVIR [Suspect]
     Indication: CHRONIC HEPATITIS
     Dosage: 2250MG DAILY (3 TABELTS + 3 TABLETS; EVERY 18 HOURS)
     Route: 048
     Dates: start: 20131209
  4. SUBUTEX [Concomitant]
  5. BIOCHETASI [Concomitant]
  6. PLASIL [Concomitant]
     Dosage: STRENGTH: 10MG/10ML, 7ML
     Route: 048

REACTIONS (6)
  - Hyperamylasaemia [Unknown]
  - Hyperlipasaemia [Unknown]
  - Abdominal pain [Unknown]
  - Diarrhoea [Unknown]
  - Nausea [Unknown]
  - Vomiting [Unknown]
